FAERS Safety Report 24318034 (Version 1)
Quarter: 2024Q3

REPORT INFORMATION
  Report Type: Report from Study
  Country: GB (occurrence: None)
  Receive Date: 20240913
  Receipt Date: 20240913
  Transmission Date: 20241017
  Serious: Yes (Other)
  Sender: ASTRAZENECA
  Company Number: 2024A203752

PATIENT

DRUGS (14)
  1. OMEPRAZOLE [Suspect]
     Active Substance: OMEPRAZOLE
     Route: 048
  2. TOCILIZUMAB [Suspect]
     Active Substance: TOCILIZUMAB
     Indication: COVID-19
     Route: 042
  3. ACETAMINOPHEN [Suspect]
     Active Substance: ACETAMINOPHEN
     Dosage: 1GR FOUR TIMES A DAY
     Route: 042
  4. PREDNISOLONE [Suspect]
     Active Substance: PREDNISOLONE
     Route: 064
  5. CEFTRIAXONE [Suspect]
     Active Substance: CEFTRIAXONE\CEFTRIAXONE SODIUM
     Route: 064
  6. CLARITHROMYCIN [Suspect]
     Active Substance: CLARITHROMYCIN
     Route: 064
  7. ENOXAPARIN [Suspect]
     Active Substance: ENOXAPARIN
     Route: 064
  8. INSULIN ASPART [Suspect]
     Active Substance: INSULIN ASPART
     Dosage: 4 UNITS THREE TIMES A DAY
     Route: 064
  9. ISOPHANE INSULIN [Suspect]
     Active Substance: INSULIN NOS
     Dosage: 2 UNITS ONCE A DAY
     Route: 064
  10. CODEINE [Suspect]
     Active Substance: CODEINE
     Dosage: AS REQUIRED
     Route: 064
  11. CHOLECALCIFEROL [Suspect]
     Active Substance: CHOLECALCIFEROL
     Dosage: 800 IU DAILY
     Route: 064
  12. LACTULOSE [Suspect]
     Active Substance: LACTULOSE
     Route: 064
  13. BETAMETHASONE [Suspect]
     Active Substance: BETAMETHASONE
     Dosage: 12 MG 2 DF
     Route: 064
  14. INSULIN NOS [Suspect]
     Active Substance: INSULIN NOS
     Dosage: VARIABLE RATE INSULIN INTRAVENOUS INFUSION
     Route: 064

REACTIONS (4)
  - Foetal exposure during pregnancy [Unknown]
  - Respiratory distress [Unknown]
  - Premature baby [Unknown]
  - Jaundice [Unknown]
